FAERS Safety Report 5224054-8 (Version None)
Quarter: 2007Q1

REPORT INFORMATION
  Report Type: 
  Country: None (occurrence: None)
  Receive Date: 20070130
  Receipt Date: 20070125
  Transmission Date: 20070707
  Serious: Yes (Hospitalization)
  Sender: FDA-Public Use
  Company Number: HQWYE945512DEC05

PATIENT
  Sex: Female
  Weight: 53.6 kg

DRUGS (5)
  1. SIROLIMUS [Suspect]
     Indication: PROPHYLAXIS AGAINST TRANSPLANT REJECTION
     Route: 048
  2. LABETALOL HCL [Concomitant]
     Indication: HYPERTENSION
     Route: 048
     Dates: start: 20051201
  3. MYCELEX [Concomitant]
     Indication: CANDIDIASIS
     Route: 048
     Dates: start: 20051121
  4. TYLENOL W/ CODEINE [Concomitant]
     Indication: PAIN
     Dosage: AS NEEDED
     Route: 048
     Dates: start: 20051202
  5. BACTRIM DS [Concomitant]
     Route: 048
     Dates: start: 20051125

REACTIONS (1)
  - ATRIAL THROMBOSIS [None]
